FAERS Safety Report 10208866 (Version 2)
Quarter: 2014Q2

REPORT INFORMATION
  Report Type: Spontaneous
  Country: US (occurrence: US)
  Receive Date: 20140530
  Receipt Date: 20140530
  Transmission Date: 20141212
  Serious: Yes (Hospitalization, Other)
  Sender: FDA-Public Use
  Company Number: US-GILEAD-2014-0094398

PATIENT
  Sex: Female

DRUGS (2)
  1. LETAIRIS [Suspect]
     Indication: PULMONARY HYPERTENSION
     Dosage: 5 MG, UNK
     Route: 065
     Dates: start: 20131024
  2. LETAIRIS [Suspect]
     Indication: HIV INFECTION

REACTIONS (4)
  - Pneumonia [Unknown]
  - Hypercapnia [Unknown]
  - Hypoxia [Unknown]
  - Tracheostomy [Unknown]
